FAERS Safety Report 21563184 (Version 1)
Quarter: 2022Q4

REPORT INFORMATION
  Report Type: Spontaneous
  Country: US (occurrence: US)
  Receive Date: 20221107
  Receipt Date: 20221107
  Transmission Date: 20230112
  Serious: No
  Sender: FDA-Public Use
  Company Number: US-SA-SAC20221103001313

PATIENT
  Sex: Female

DRUGS (1)
  1. DUPIXENT [Suspect]
     Active Substance: DUPILUMAB
     Indication: Asthma
     Dosage: 2 ML, QOW, INJECT 2ML SUBCUTANEOUSLY EVERY TWO WEEKS FREQUENCY: INJECT 2ML SUBCUTANEOUSLY EVERY TWO
     Route: 058

REACTIONS (1)
  - Injection site dryness [Unknown]
